FAERS Safety Report 10403368 (Version 3)
Quarter: 2014Q3

REPORT INFORMATION
  Report Type: Spontaneous
  Country: DE (occurrence: DE)
  Receive Date: 20140822
  Receipt Date: 20140916
  Transmission Date: 20150326
  Serious: Yes (Life-Threatening, Hospitalization)
  Sender: FDA-Public Use
  Company Number: DE-TEVA-502312GER

PATIENT
  Age: 29 Year
  Sex: Female

DRUGS (1)
  1. CLOTRIMAZOL-CT 100 MG VAGINALTABLETTEN [Suspect]
     Active Substance: CLOTRIMAZOLE
     Indication: VULVOVAGINAL MYCOTIC INFECTION
     Dosage: 100 MILLIGRAM DAILY;
     Route: 067
     Dates: start: 20140812, end: 20140812

REACTIONS (2)
  - Anaphylactic reaction [Unknown]
  - Drug dispensing error [Unknown]

NARRATIVE: CASE EVENT DATE: 20140812
